FAERS Safety Report 4848148-1 (Version None)
Quarter: 2005Q4

REPORT INFORMATION
  Report Type: 
  Country: None (occurrence: None)
  Receive Date: 20051208
  Receipt Date: 20021104
  Transmission Date: 20060501
  Serious: Yes (Hospitalization, Other)
  Sender: FDA-Public Use
  Company Number: US-JNJFOC-20051100019

PATIENT
  Sex: Female
  Weight: 50.8 kg

DRUGS (18)
  1. REMICADE [Suspect]
     Route: 042
  2. REMICADE [Suspect]
     Route: 042
  3. REMICADE [Suspect]
     Route: 042
  4. REMICADE [Suspect]
     Route: 042
  5. REMICADE [Suspect]
     Route: 042
  6. REMICADE [Suspect]
     Route: 042
  7. REMICADE [Suspect]
     Route: 042
  8. REMICADE [Suspect]
     Route: 042
  9. REMICADE [Suspect]
     Indication: RHEUMATOID ARTHRITIS
     Route: 042
  10. METHOTREXATE [Concomitant]
  11. METHOTREXATE [Concomitant]
  12. METHOTREXATE [Concomitant]
     Indication: RHEUMATOID ARTHRITIS
  13. SYNTHROID [Concomitant]
     Indication: HYPOTHYROIDISM
     Dosage: DOSE = 88 MCG
     Route: 048
  14. PRAVACHOL [Concomitant]
     Dosage: HS
     Route: 048
  15. ACTONEL [Concomitant]
     Indication: OSTEOPOROSIS
  16. LORTAB [Concomitant]
     Indication: RHEUMATOID ARTHRITIS
  17. LORTAB [Concomitant]
     Indication: NAUSEA
     Dosage: PRN
  18. FENOFIBRATE [Concomitant]
     Dates: start: 20010704

REACTIONS (34)
  - ANAEMIA [None]
  - ANOREXIA [None]
  - ASTHENIA [None]
  - BACK PAIN [None]
  - BLOOD LACTATE DEHYDROGENASE INCREASED [None]
  - CALCINOSIS [None]
  - CANDIDURIA [None]
  - CHEST PAIN [None]
  - COMPRESSION FRACTURE [None]
  - DEPRESSION [None]
  - DIARRHOEA [None]
  - DIFFUSE LARGE B-CELL LYMPHOMA STAGE IV [None]
  - DIVERTICULITIS [None]
  - FATIGUE [None]
  - HYDRONEPHROSIS [None]
  - HYDROURETER [None]
  - HYPOKALAEMIA [None]
  - IMPAIRED GASTRIC EMPTYING [None]
  - KIDNEY INFECTION [None]
  - LOBAR PNEUMONIA [None]
  - NAUSEA [None]
  - NEPHROLITHIASIS [None]
  - NIGHT SWEATS [None]
  - NODULE [None]
  - OSTEOPOROSIS [None]
  - PAIN [None]
  - PELVIC NEOPLASM [None]
  - SINUSITIS [None]
  - SPINAL FRACTURE [None]
  - THERAPY NON-RESPONDER [None]
  - URINARY TRACT INFECTION [None]
  - VENTRICULAR EXTRASYSTOLES [None]
  - VOMITING [None]
  - WEIGHT DECREASED [None]
